FAERS Safety Report 23639150 (Version 2)
Quarter: 2024Q1

REPORT INFORMATION
  Report Type: Spontaneous
  Country: US (occurrence: US)
  Receive Date: 20240315
  Receipt Date: 20240319
  Transmission Date: 20240410
  Serious: Yes (Other)
  Sender: FDA-Public Use
  Company Number: US-ABBVIE-5676890

PATIENT
  Age: 36 Year
  Sex: Female

DRUGS (1)
  1. VUITY [Suspect]
     Active Substance: PILOCARPINE HYDROCHLORIDE
     Indication: Hypermetropia
     Dosage: ONE DROP TO RIGHT EYE, FORM STRENGTH: 1.25 PERCENT
     Route: 047
     Dates: start: 20240307, end: 20240307

REACTIONS (6)
  - Myopia [Unknown]
  - Ocular vascular disorder [Unknown]
  - Drug ineffective [Not Recovered/Not Resolved]
  - Miosis [Not Recovered/Not Resolved]
  - Vision blurred [Unknown]
  - Ocular hyperaemia [Unknown]

NARRATIVE: CASE EVENT DATE: 20240307
